FAERS Safety Report 20427079 (Version 1)
Quarter: 2022Q1

REPORT INFORMATION
  Report Type: Report from Study
  Country: US (occurrence: US)
  Receive Date: 20220204
  Receipt Date: 20220204
  Transmission Date: 20220423
  Serious: No
  Sender: FDA-Public Use
  Company Number: US-EXELIXIS-CABO-21043231

PATIENT
  Age: 79 Year
  Sex: Male

DRUGS (3)
  1. CABOMETYX [Suspect]
     Active Substance: CABOZANTINIB S-MALATE
     Indication: Renal cancer
     Dosage: 40 MG, QD
     Route: 048
     Dates: start: 20210709
  2. CABOMETYX [Suspect]
     Active Substance: CABOZANTINIB S-MALATE
     Dosage: 40 MG, QD
     Route: 048
  3. FOTIVDA [Suspect]
     Active Substance: TIVOZANIB HYDROCHLORIDE
     Indication: Renal cancer
     Dosage: 1.34 MG

REACTIONS (6)
  - Adverse drug reaction [Unknown]
  - Performance status decreased [Unknown]
  - Somnolence [Unknown]
  - Confusional state [Unknown]
  - Pain [Unknown]
  - Asthenia [Unknown]

NARRATIVE: CASE EVENT DATE: 20210801
